FAERS Safety Report 9811747 (Version 2)
Quarter: 2015Q4

REPORT INFORMATION
  Report Type: Spontaneous
  Country: US (occurrence: US)
  Receive Date: 20140110
  Receipt Date: 20151228
  Transmission Date: 20160305
  Serious: Yes (Other)
  Sender: FDA-Public Use
  Company Number: US-SANOFI-AVENTIS-2013SA066908

PATIENT
  Age: 57 Year
  Sex: Male
  Weight: 70.3 kg

DRUGS (31)
  1. VESICARE [Concomitant]
     Active Substance: SOLIFENACIN SUCCINATE
  2. ENALAPRIL [Concomitant]
     Active Substance: ENALAPRIL
  3. METFORMIN [Concomitant]
     Active Substance: METFORMIN HYDROCHLORIDE
  4. VITAMIN C [Concomitant]
     Active Substance: ASCORBIC ACID
  5. CRESTOR [Concomitant]
     Active Substance: ROSUVASTATIN CALCIUM
  6. METOPROLOL [Concomitant]
     Active Substance: METOPROLOL
  7. JANUVIA [Concomitant]
     Active Substance: SITAGLIPTIN PHOSPHATE
  8. COZAAR [Concomitant]
     Active Substance: LOSARTAN POTASSIUM
  9. NAPROXEN. [Concomitant]
     Active Substance: NAPROXEN
  10. LANTUS [Concomitant]
     Active Substance: INSULIN GLARGINE
     Dosage: DOSE:10 UNIT(S)
  11. ASA [Concomitant]
     Active Substance: ASPIRIN
  12. NIFEDICAL XL [Concomitant]
     Active Substance: NIFEDIPINE
  13. VITAMIN D [Concomitant]
     Active Substance: CHOLECALCIFEROL
  14. VITAMIN B-COMPLEX [Concomitant]
     Active Substance: DEXPANTHENOL\NIACINAMIDE\PYRIDOXINE HYDROCHLORIDE\RIBOFLAVIN 5^-PHOSPHATE SODIUM\THIAMINE HYDROCHLORIDE
  15. ZOCOR [Concomitant]
     Active Substance: SIMVASTATIN
  16. CIALIS [Concomitant]
     Active Substance: TADALAFIL
  17. GLUCOVANCE [Concomitant]
     Active Substance: GLYBURIDE\METFORMIN HYDROCHLORIDE
  18. ARTHROTEC [Concomitant]
     Active Substance: DICLOFENAC SODIUM\MISOPROSTOL
  19. PLAVIX [Suspect]
     Active Substance: CLOPIDOGREL BISULFATE
     Indication: STENT PLACEMENT
     Route: 048
     Dates: start: 2004, end: 200907
  20. GABAPENTIN. [Concomitant]
     Active Substance: GABAPENTIN
  21. NEURONTIN [Concomitant]
     Active Substance: GABAPENTIN
  22. LIPITOR [Concomitant]
     Active Substance: ATORVASTATIN CALCIUM
  23. DIOVAN [Concomitant]
     Active Substance: VALSARTAN
     Route: 048
  24. LOSARTAN. [Concomitant]
     Active Substance: LOSARTAN
  25. PROCARDIA [Concomitant]
     Active Substance: NIFEDIPINE
  26. NEXIUM [Concomitant]
     Active Substance: ESOMEPRAZOLE MAGNESIUM
  27. ASPIRIN. [Concomitant]
     Active Substance: ASPIRIN
  28. OMEGA 3 [Concomitant]
     Active Substance: OMEGA-3 FATTY ACIDS
  29. GLIPIZIDE. [Concomitant]
     Active Substance: GLIPIZIDE
  30. ATORVASTATIN [Concomitant]
     Active Substance: ATORVASTATIN
  31. FISH OIL [Concomitant]
     Active Substance: FISH OIL

REACTIONS (2)
  - Injury [Unknown]
  - Cerebral haemorrhage [Not Recovered/Not Resolved]

NARRATIVE: CASE EVENT DATE: 200907
